FAERS Safety Report 9365866 (Version 2)
Quarter: 2013Q3

REPORT INFORMATION
  Report Type: Spontaneous
  Country: GB (occurrence: GB)
  Receive Date: 20130625
  Receipt Date: 20130731
  Transmission Date: 20140515
  Serious: Yes (Hospitalization, Other)
  Sender: FDA-Public Use
  Company Number: PHFR2013GB003561

PATIENT
  Age: 47 Year
  Sex: Male

DRUGS (2)
  1. CLOZARIL [Suspect]
     Indication: SCHIZOPHRENIA
     Dosage: 575 MG, QD (125 MG MANE, 150 MG MIDDAY AND 300 MG NOCTE)
     Route: 048
     Dates: start: 20081013
  2. CLOZARIL [Suspect]
     Dosage: UNK
     Dates: start: 20130705

REACTIONS (4)
  - Tibia fracture [Recovered/Resolved]
  - Consciousness fluctuating [Recovered/Resolved]
  - Dyspnoea [Recovered/Resolved]
  - Blood creatine phosphokinase increased [Recovered/Resolved]
